FAERS Safety Report 6495860-7 (Version None)
Quarter: 2009Q4

REPORT INFORMATION
  Report Type: 
  Country: None (occurrence: None)
  Receive Date: 20091214
  Receipt Date: 20090819
  Transmission Date: 20100525
  Serious: No
  Sender: FDA-Public Use
  Company Number: US-BRISTOL-MYERS SQUIBB COMPANY-14749626

PATIENT

DRUGS (2)
  1. ABILIFY [Suspect]
     Indication: BIPOLAR DISORDER
     Dosage: DOSAGES ARE TITRATED UP TO 10 AND 15MG.
  2. ABILIFY [Suspect]
     Indication: AFFECTIVE DISORDER
     Dosage: DOSAGES ARE TITRATED UP TO 10 AND 15MG.

REACTIONS (1)
  - PSYCHOMOTOR HYPERACTIVITY [None]
